FAERS Safety Report 9172095 (Version 1)
Quarter: 2013Q1

REPORT INFORMATION
  Report Type: Spontaneous
  Country: None (occurrence: US)
  Receive Date: 20130319
  Receipt Date: 20130319
  Transmission Date: 20140127
  Serious: No
  Sender: FDA-Public Use
  Company Number: AX-ASTRAZENECA-2013SE14861

PATIENT
  Sex: 0

DRUGS (2)
  1. TOPROL XL [Suspect]
     Route: 048
  2. UNKNOWN [Concomitant]

REACTIONS (1)
  - Ventricular extrasystoles [Unknown]
